FAERS Safety Report 20281951 (Version 1)
Quarter: 2022Q1

REPORT INFORMATION
  Report Type: Spontaneous
  Country: DE (occurrence: DE)
  Receive Date: 20220103
  Receipt Date: 20220103
  Transmission Date: 20220423
  Serious: Yes (Hospitalization)
  Sender: FDA-Public Use
  Company Number: DE-ADRED-07424-01

PATIENT
  Age: 70 Year
  Sex: Female
  Weight: 99 kg

DRUGS (15)
  1. SPIRONOLACTONE [Interacting]
     Active Substance: SPIRONOLACTONE
     Indication: Product used for unknown indication
     Dosage: 25 MILLIGRAM (0-1-0-0)
  2. TORSEMIDE [Interacting]
     Active Substance: TORSEMIDE
     Indication: Product used for unknown indication
     Dosage: 20 MILLIGRAM (1-0-0-0)
  3. TELMISARTAN [Interacting]
     Active Substance: TELMISARTAN
     Indication: Product used for unknown indication
     Dosage: 80 MILLIGRAM (1-0-0-0)
  4. ETORICOXIB [Interacting]
     Active Substance: ETORICOXIB
     Indication: Product used for unknown indication
     Dosage: 90 MILLIGRAM
  5. FEBUXOSTAT [Interacting]
     Active Substance: FEBUXOSTAT
     Indication: Product used for unknown indication
     Dosage: 80 MILLIGRAM
  6. METFORMIN\SITAGLIPTIN [Interacting]
     Active Substance: METFORMIN\SITAGLIPTIN
     Indication: Product used for unknown indication
     Dosage: 1000|50 MG, 1-0-1-0
  7. EDOXABAN [Concomitant]
     Active Substance: EDOXABAN
     Dosage: 60 MILLIGRAM 1-0-0-0
  8. LERCANIDIPINE [Concomitant]
     Active Substance: LERCANIDIPINE
     Dosage: 10 MILLIGRAM (1-0-0-0)
  9. NALOXONE HYDROCHLORIDE\TILIDINE HYDROCHLORIDE [Concomitant]
     Active Substance: NALOXONE HYDROCHLORIDE\TILIDINE HYDROCHLORIDE
     Dosage: 8|100 MG, 1-0-0-0
  10. SOLIFENACIN [Concomitant]
     Active Substance: SOLIFENACIN
     Dosage: 10 MILLIGRAM (0.5-0-0.5-0)
  11. PANTOPRAZOLE SODIUM [Concomitant]
     Active Substance: PANTOPRAZOLE SODIUM
     Dosage: 40 MILLIGRAM (1-0-0-0)
  12. ATORVASTATIN [Concomitant]
     Active Substance: ATORVASTATIN
     Dosage: 40 MILLIGRAM (1-0-0-0)
  13. NEBIVOLOL [Concomitant]
     Active Substance: NEBIVOLOL
     Dosage: 5 MILLIGRAM (1-0-0-0)
  14. AMIODARONE [Concomitant]
     Active Substance: AMIODARONE
     Dosage: 200 MILLIGRAM (1-0-0-0)
  15. BENSERAZIDE\LEVODOPA [Concomitant]
     Active Substance: BENSERAZIDE\LEVODOPA
     Dosage: 25|100 MG, 0-0-0-0.5

REACTIONS (3)
  - Renal function test abnormal [Unknown]
  - Contraindicated product administered [Unknown]
  - Labelled drug-drug interaction medication error [Unknown]

NARRATIVE: CASE EVENT DATE: 20210324
